FAERS Safety Report 8224858-3 (Version None)
Quarter: 2012Q1

REPORT INFORMATION
  Report Type: 
  Country: None (occurrence: None)
  Receive Date: 20120321
  Receipt Date: 20120313
  Transmission Date: 20120608
  Serious: Yes (Other)
  Sender: FDA-Public Use
  Company Number: US-ROCHE-1040797

PATIENT
  Weight: 127.12 kg

DRUGS (8)
  1. VENTOLIN HFA [Concomitant]
  2. ALBUTEROL [Concomitant]
  3. CARDIZEM [Concomitant]
  4. DIGOXIN [Concomitant]
  5. FLOVENT [Concomitant]
  6. XOLAIR [Suspect]
     Indication: ASTHMA
     Route: 058
     Dates: start: 20111206
  7. SYNTHROID [Concomitant]
  8. SINGULAIR [Concomitant]

REACTIONS (1)
  - INTRACRANIAL ANEURYSM [None]
